FAERS Safety Report 14854898 (Version 1)
Quarter: 2018Q2

REPORT INFORMATION
  Report Type: Spontaneous
  Country: FR (occurrence: FR)
  Receive Date: 20180507
  Receipt Date: 20180507
  Transmission Date: 20180711
  Serious: Yes (Disabling)
  Sender: FDA-Public Use
  Company Number: FR-MYLANLABS-2018M1028298

PATIENT
  Age: 33 Year
  Sex: Male
  Weight: 96 kg

DRUGS (1)
  1. KETOPROFEN. [Suspect]
     Active Substance: KETOPROFEN
     Indication: EAR INFECTION
     Dosage: ? LA DEMANDE
     Route: 048

REACTIONS (3)
  - Condition aggravated [Recovered/Resolved with Sequelae]
  - Brain empyema [Recovered/Resolved with Sequelae]
  - Meningitis pneumococcal [Recovered/Resolved with Sequelae]

NARRATIVE: CASE EVENT DATE: 20171231
